FAERS Safety Report 19741557 (Version 6)
Quarter: 2022Q4

REPORT INFORMATION
  Report Type: Report from Study
  Country: JP (occurrence: JP)
  Receive Date: 20210825
  Receipt Date: 20221006
  Transmission Date: 20230113
  Serious: Yes (Other)
  Sender: FDA-Public Use
  Company Number: JP-TAKEDA-JP201512570

PATIENT
  Age: 29 Year
  Sex: Male
  Weight: 57 kg

DRUGS (27)
  1. VELAGLUCERASE ALFA [Suspect]
     Active Substance: VELAGLUCERASE ALFA
     Indication: Gaucher^s disease
     Dosage: APPROX.60 IU/KG, 1X/2WKS
     Route: 042
     Dates: start: 20140924
  2. VELAGLUCERASE ALFA [Suspect]
     Active Substance: VELAGLUCERASE ALFA
     Dosage: UNK UNK, UNKNOWN
     Route: 042
     Dates: start: 20130117, end: 20140924
  3. MYSTAN [Concomitant]
     Active Substance: CLOBAZAM
     Indication: Gaucher^s disease
     Dosage: 15-35 MG, UNKNOWN
     Route: 048
     Dates: start: 20110304, end: 20170614
  4. MYSTAN [Concomitant]
     Active Substance: CLOBAZAM
     Indication: Prophylaxis
  5. COCARL [Concomitant]
     Active Substance: ACETAMINOPHEN
     Indication: Product used for unknown indication
     Dosage: 400 MG/DAY
     Route: 048
     Dates: start: 20150430, end: 20150514
  6. DEXAMETHASONE SODIUM PHOSPHATE [Concomitant]
     Active Substance: DEXAMETHASONE SODIUM PHOSPHATE
     Indication: Product used for unknown indication
     Dosage: 3.3 MG, UNKNOWN
     Route: 014
     Dates: start: 20150704, end: 20150704
  7. CARBOCAINE [Concomitant]
     Active Substance: MEPIVACAINE HYDROCHLORIDE
     Indication: Product used for unknown indication
     Dosage: 1 DF/DAY
     Route: 014
     Dates: start: 20150704, end: 20150704
  8. NEO VITACAIN                       /01590801/ [Concomitant]
     Indication: Product used for unknown indication
     Dosage: 1 DF/DAY
     Route: 053
     Dates: start: 20150704, end: 20150704
  9. LOXOPROFEN SODIUM [Concomitant]
     Active Substance: LOXOPROFEN SODIUM
     Indication: Product used for unknown indication
     Dosage: 120 MG, UNKNOWN
     Route: 048
     Dates: start: 20150709, end: 20150715
  10. REBAMIPIDE [Concomitant]
     Active Substance: REBAMIPIDE
     Indication: Product used for unknown indication
     Dosage: 200 MG, UNKNOWN
     Route: 048
     Dates: start: 20150709, end: 20150715
  11. ZOLPIDEM TARTRATE [Concomitant]
     Active Substance: ZOLPIDEM TARTRATE
     Indication: Product used for unknown indication
     Dosage: 5 MG, UNKNOWN
     Route: 048
     Dates: start: 20141106, end: 20170907
  12. ZOLPIDEM TARTRATE [Concomitant]
     Active Substance: ZOLPIDEM TARTRATE
     Indication: Insomnia
  13. AMBROXOL HYDROCHLORIDE [Concomitant]
     Active Substance: AMBROXOL HYDROCHLORIDE
     Indication: Product used for unknown indication
     Dosage: 90 MG, UNKNOWN
     Route: 048
     Dates: start: 20160224, end: 20181227
  14. LEVETIRACETAM [Concomitant]
     Active Substance: LEVETIRACETAM
     Indication: Gaucher^s disease
     Dosage: 2 DOSAGE FORM, UNKNOWN
     Route: 048
     Dates: start: 20190221, end: 20210908
  15. LEVETIRACETAM [Concomitant]
     Active Substance: LEVETIRACETAM
     Dosage: 3 DOSAGE FORM, UNKNOWN
     Route: 048
     Dates: start: 20210909, end: 20211006
  16. LEVETIRACETAM [Concomitant]
     Active Substance: LEVETIRACETAM
     Dosage: 4 DOSAGE FORM, UNKNOWN
     Route: 048
     Dates: start: 20211007, end: 20220119
  17. LEVETIRACETAM [Concomitant]
     Active Substance: LEVETIRACETAM
     Dosage: 6 DOSAGE FORM, UNKNOWN
     Route: 048
     Dates: start: 20220120, end: 20220216
  18. LEVETIRACETAM [Concomitant]
     Active Substance: LEVETIRACETAM
     Dosage: 5 DOSAGE FORM, UNKNOWN
     Route: 048
     Dates: start: 20220217
  19. BELSOMRA [Concomitant]
     Active Substance: SUVOREXANT
     Indication: Product used for unknown indication
     Dosage: 20 MG, UNKNOWN
     Route: 048
     Dates: start: 20170907, end: 20171228
  20. DEPAKENE                           /00228501/ [Concomitant]
     Indication: Gaucher^s disease
     Dosage: 1000 MILLIGRAM
     Route: 048
     Dates: start: 20170126, end: 20190221
  21. DEPAKENE                           /00228501/ [Concomitant]
     Dosage: 800 MILLIGRAM
     Route: 048
     Dates: start: 20190222, end: 20190307
  22. DEPAKENE                           /00228501/ [Concomitant]
     Dosage: 600 MILLIGRAM
     Route: 048
     Dates: start: 20190308, end: 20190404
  23. DEPAKENE                           /00228501/ [Concomitant]
     Dosage: 400 MILLIGRAM
     Route: 048
     Dates: start: 20190405, end: 20190516
  24. DEPAKENE                           /00228501/ [Concomitant]
     Dosage: 200 MILLIGRAM
     Route: 048
     Dates: start: 20190517, end: 20190613
  25. DEPAKENE                           /00228501/ [Concomitant]
     Dosage: 200 MILLIGRAM
     Route: 048
     Dates: start: 20190919, end: 20191016
  26. DEPAKENE                           /00228501/ [Concomitant]
     Dosage: 400 MILLIGRAM
     Route: 048
     Dates: start: 20191017
  27. IMIGLUCERASE RECOMBINANT [Concomitant]
     Indication: Gaucher^s disease
     Dosage: UNK
     Route: 065
     Dates: start: 19980716, end: 20120302

REACTIONS (26)
  - Duodenal ulcer [Recovered/Resolved]
  - Bipolar disorder [Recovering/Resolving]
  - Duodenal ulcer [Recovered/Resolved]
  - Duodenal ulcer [Recovering/Resolving]
  - Dizziness postural [Recovered/Resolved]
  - Blepharospasm [Recovered/Resolved]
  - Conjunctivitis [Recovered/Resolved]
  - Dental caries [Recovered/Resolved]
  - Chest pain [Recovered/Resolved]
  - Headache [Recovered/Resolved]
  - Insomnia [Recovered/Resolved]
  - Upper respiratory tract inflammation [Recovered/Resolved]
  - Upper respiratory tract inflammation [Recovered/Resolved]
  - Rhinitis allergic [Recovered/Resolved]
  - Upper respiratory tract inflammation [Recovered/Resolved]
  - Rhinitis allergic [Recovered/Resolved]
  - Somnolence [Recovered/Resolved]
  - Seasonal allergy [Recovered/Resolved]
  - Myoclonus [Recovering/Resolving]
  - Condition aggravated [Recovering/Resolving]
  - Myoclonus [Recovering/Resolving]
  - Condition aggravated [Recovering/Resolving]
  - Rhinitis allergic [Recovered/Resolved]
  - Conjunctivitis allergic [Recovered/Resolved]
  - Gastroenteritis [Recovered/Resolved]
  - COVID-19 [Recovered/Resolved]

NARRATIVE: CASE EVENT DATE: 20141009
